FAERS Safety Report 12828655 (Version 1)
Quarter: 2016Q4

REPORT INFORMATION
  Report Type: Spontaneous
  Country: US (occurrence: US)
  Receive Date: 20161007
  Receipt Date: 20161007
  Transmission Date: 20170207
  Serious: No
  Sender: FDA-Public Use
  Company Number: US-SA-2015SA211990

PATIENT
  Age: 60 Year
  Sex: Male

DRUGS (5)
  1. TYLENOL [Concomitant]
     Active Substance: ACETAMINOPHEN
  2. ZOLOFT [Concomitant]
     Active Substance: SERTRALINE HYDROCHLORIDE
  3. IMODIUM A-D [Concomitant]
     Active Substance: LOPERAMIDE HYDROCHLORIDE
  4. ROPINIROLE HYDROCHLORIDE. [Concomitant]
     Active Substance: ROPINIROLE HYDROCHLORIDE
  5. AUBAGIO [Suspect]
     Active Substance: TERIFLUNOMIDE
     Indication: MULTIPLE SCLEROSIS
     Route: 048

REACTIONS (8)
  - Fatigue [Unknown]
  - Gait disturbance [Unknown]
  - Fall [Unknown]
  - Abdominal distension [Unknown]
  - Paraesthesia [Unknown]
  - Contusion [Unknown]
  - Depressed mood [Unknown]
  - Diarrhoea [Unknown]
